FAERS Safety Report 8381056-0 (Version None)
Quarter: 2012Q2

REPORT INFORMATION
  Report Type: 
  Country: None (occurrence: None)
  Receive Date: 20120523
  Receipt Date: 20120518
  Transmission Date: 20120825
  Serious: Yes (Other)
  Sender: FDA-Public Use
  Company Number: US-PFIZER INC-2012114817

PATIENT
  Sex: Female

DRUGS (14)
  1. OXYCODONE HYDROCHLORIDE [Suspect]
     Indication: INFLAMMATION
  2. PROMETHAZINE [Concomitant]
     Dosage: 25 MG, UNK
  3. DILAUDID [Suspect]
     Indication: NECK PAIN
     Dosage: 8 MG, UNK
     Route: 048
  4. OXYCODONE HYDROCHLORIDE [Suspect]
     Indication: NECK PAIN
     Dosage: 5 MG, UNK
  5. SOMA [Suspect]
     Indication: MUSCLE RELAXANT THERAPY
     Dosage: UNK
  6. OXYCONTIN [Suspect]
     Indication: NECK PAIN
     Dosage: 40 MG, UNK
  7. DIAZEPAM [Suspect]
     Indication: MUSCLE RELAXANT THERAPY
     Dosage: 5 MG, UNK
  8. AMITRIPTYLINE [Concomitant]
     Dosage: 75 MG, UNK
  9. CHLORDIAZEPOXIDE [Concomitant]
     Dosage: 10 MG, UNK
  10. IBUPROFEN [Suspect]
     Indication: INFLAMMATION
  11. PRILOSEC [Concomitant]
     Indication: GASTRIC DISORDER
     Dosage: UNK
  12. IBUPROFEN [Suspect]
     Indication: NECK PAIN
     Dosage: UNK
  13. OXYCONTIN [Suspect]
     Indication: INFLAMMATION
  14. DILAUDID [Suspect]
     Indication: INFLAMMATION

REACTIONS (10)
  - ARTHROPATHY [None]
  - INTERVERTEBRAL DISC DISORDER [None]
  - INTERVERTEBRAL DISC OPERATION [None]
  - SURGERY [None]
  - TARSAL TUNNEL SYNDROME [None]
  - ACCIDENT [None]
  - BENIGN NEOPLASM [None]
  - CARPAL TUNNEL SYNDROME [None]
  - INTERVERTEBRAL DISC PROTRUSION [None]
  - DRUG INEFFECTIVE [None]
